FAERS Safety Report 5835104-X (Version None)
Quarter: 2008Q3

REPORT INFORMATION
  Report Type: 
  Country: None (occurrence: None)
  Receive Date: 20080804
  Receipt Date: 20080724
  Transmission Date: 20090109
  Serious: Yes (Death)
  Sender: FDA-Public Use
  Company Number: 2008JP002639

PATIENT
  Age: 58 Year
  Sex: Male
  Weight: 50.7 kg

DRUGS (2)
  1. PROGRAF [Suspect]
     Indication: RHEUMATOID ARTHRITIS
     Dosage: 1 MG, UID/QD, ORAL
     Route: 048
     Dates: end: 20071111
  2. PREDNISOLONE [Concomitant]

REACTIONS (8)
  - CARDIAC ARREST [None]
  - FATIGUE [None]
  - HEART RATE INCREASED [None]
  - HYPOTENSION [None]
  - HYPOXIA [None]
  - NOCARDIOSIS [None]
  - TACHYPNOEA [None]
  - URINE OUTPUT DECREASED [None]
